FAERS Safety Report 6369377-4 (Version None)
Quarter: 2009Q3

REPORT INFORMATION
  Report Type: 
  Country: None (occurrence: None)
  Receive Date: 20090917
  Receipt Date: 20090909
  Transmission Date: 20100115
  Serious: Yes (Hospitalization)
  Sender: FDA-Public Use
  Company Number: ABWAS-09-0430

PATIENT
  Age: 53 Year
  Sex: Female

DRUGS (2)
  1. ABRAXANE [Suspect]
     Indication: BREAST CANCER
     Dosage: (100 MG/M2)
     Dates: start: 20090805
  2. TENORMIN [Concomitant]

REACTIONS (2)
  - HEART RATE INCREASED [None]
  - LUNG DISORDER [None]
